FAERS Safety Report 9108856 (Version 1)
Quarter: 2013Q1

REPORT INFORMATION
  Report Type: Spontaneous
  Country: CO (occurrence: CO)
  Receive Date: 20130222
  Receipt Date: 20130222
  Transmission Date: 20140127
  Serious: Yes (Other)
  Sender: FDA-Public Use
  Company Number: CO-PFIZER INC-2013063470

PATIENT
  Sex: Male

DRUGS (1)
  1. AROMASIN [Suspect]
     Dosage: UNK
     Route: 065

REACTIONS (1)
  - Optic neuritis [Unknown]
